FAERS Safety Report 5265437-X (Version None)
Quarter: 2007Q1

REPORT INFORMATION
  Report Type: 
  Country: None (occurrence: None)
  Receive Date: 20070314
  Receipt Date: 20070221
  Transmission Date: 20070707
  Serious: Yes (Death, Hospitalization, Other)
  Sender: FDA-Public Use
  Company Number: US-PFIZER INC-2007015130

PATIENT
  Sex: Male
  Weight: 77.1 kg

DRUGS (2)
  1. BEXTRA [Suspect]
     Indication: ARTHRITIS
     Dates: start: 20031128, end: 20040511
  2. CELEBREX [Suspect]
     Indication: ARTHRITIS
     Dates: start: 20000827, end: 20010801

REACTIONS (1)
  - MYOCARDIAL INFARCTION [None]
